FAERS Safety Report 6301420-0 (Version None)
Quarter: 2009Q3

REPORT INFORMATION
  Report Type: 
  Country: None (occurrence: None)
  Receive Date: 20090807
  Receipt Date: 20090724
  Transmission Date: 20100115
  Serious: Yes (Hospitalization)
  Sender: FDA-Public Use
  Company Number: FR-CELGENEUS-056-50794-09071162

PATIENT
  Sex: Male
  Weight: 88 kg

DRUGS (8)
  1. VIDAZA [Suspect]
     Route: 058
     Dates: start: 20090615, end: 20090619
  2. VIDAZA [Suspect]
     Route: 058
     Dates: start: 20090727, end: 20090731
  3. NEORECORMON [Suspect]
     Route: 058
     Dates: start: 20090616, end: 20090727
  4. ATENOLOL [Concomitant]
     Indication: DRUG USE FOR UNKNOWN INDICATION
     Route: 048
     Dates: start: 20071201
  5. KARDEGIC [Concomitant]
     Indication: DRUG USE FOR UNKNOWN INDICATION
     Route: 048
     Dates: start: 20071220
  6. TAHOR [Concomitant]
     Indication: DRUG USE FOR UNKNOWN INDICATION
     Route: 048
     Dates: start: 20071201
  7. INIPOMP [Concomitant]
     Indication: DRUG USE FOR UNKNOWN INDICATION
     Route: 048
     Dates: start: 20071201
  8. TAREG [Concomitant]
     Indication: DRUG USE FOR UNKNOWN INDICATION
     Route: 048
     Dates: start: 20071201

REACTIONS (2)
  - ESCHERICHIA SEPSIS [None]
  - FEBRILE BONE MARROW APLASIA [None]
